FAERS Safety Report 8777659 (Version 5)
Quarter: 2012Q4

REPORT INFORMATION
  Report Type: 
  Country: US (occurrence: US)
  Receive Date: 20120912
  Receipt Date: 20121107
  Transmission Date: 20130627
  Serious: No
  Sender: FDA-Public Use
  Company Number: US-ASTRAZENECA-2012SE69251

PATIENT
  Age: 61 Year
  Sex: Female

DRUGS (2)
  1. CRESTOR [Suspect]
     Indication: BLOOD CHOLESTEROL ABNORMAL
     Route: 048
  2. VINEGAR [Concomitant]

REACTIONS (9)
  - Liver disorder [Recovered/Resolved]
  - Malaise [Unknown]
  - Mobility decreased [Unknown]
  - Arthritis [Unknown]
  - Peripheral nerve lesion [Unknown]
  - Pain in extremity [Unknown]
  - Arthralgia [Unknown]
  - Blood cholesterol increased [Unknown]
  - Drug dose omission [Unknown]
